FAERS Safety Report 4666388-1 (Version None)
Quarter: 2005Q2

REPORT INFORMATION
  Report Type: 
  Country: None (occurrence: None)
  Receive Date: 20050519
  Receipt Date: 20050321
  Transmission Date: 20051028
  Serious: Yes (Death, Hospitalization)
  Sender: FDA-Public Use
  Company Number: 2005AC00471

PATIENT
  Age: 75 Year
  Sex: Male

DRUGS (2)
  1. CANDESARTAN [Suspect]
     Indication: HYPERTENSION
     Dosage: TAKEN FOR OVER 1 YEAR
     Route: 048
  2. POTASSIUM CITRATE [Concomitant]
     Indication: NEPHROLITHIASIS

REACTIONS (7)
  - LEUKOCYTOSIS [None]
  - METABOLIC ACIDOSIS [None]
  - PANCREATITIS ACUTE [None]
  - RENAL FAILURE ACUTE [None]
  - RESPIRATORY FAILURE [None]
  - SEPTIC SHOCK [None]
  - VENTRICULAR FIBRILLATION [None]
